FAERS Safety Report 4279583-0 (Version None)
Quarter: 2004Q1

REPORT INFORMATION
  Report Type: 
  Country: None (occurrence: None)
  Receive Date: 20040126
  Receipt Date: 20040126
  Transmission Date: 20041129
  Serious: Yes (Death)
  Sender: FDA-Public Use
  Company Number: None

PATIENT
  Sex: Male
  Weight: 60.1923 kg

DRUGS (6)
  1. GLEEVEC [Suspect]
     Indication: GASTROINTESTINAL STROMAL TUMOUR
     Dosage: SEE IMAGE
     Route: 048
     Dates: start: 20010525, end: 20031218
  2. GLEEVEC [Suspect]
     Indication: METASTASIS
     Dosage: SEE IMAGE
     Route: 048
     Dates: start: 20010525, end: 20031218
  3. GLEEVEC [Suspect]
     Indication: GASTROINTESTINAL STROMAL TUMOUR
     Dosage: SEE IMAGE
     Route: 048
     Dates: start: 20031219, end: 20040104
  4. GLEEVEC [Suspect]
     Indication: METASTASIS
     Dosage: SEE IMAGE
     Route: 048
     Dates: start: 20031219, end: 20040104
  5. SPIRONOLACTONE [Concomitant]
  6. OXYCONTIN [Concomitant]

REACTIONS (12)
  - BLOOD PRESSURE DIASTOLIC DECREASED [None]
  - CARDIO-RESPIRATORY ARREST [None]
  - CEREBROVASCULAR ACCIDENT [None]
  - CONTUSION [None]
  - DEPRESSED LEVEL OF CONSCIOUSNESS [None]
  - EAR HAEMORRHAGE [None]
  - FALL [None]
  - HEART RATE INCREASED [None]
  - LACERATION [None]
  - MEMORY IMPAIRMENT [None]
  - MOUTH HAEMORRHAGE [None]
  - RESPIRATORY RATE INCREASED [None]
